FAERS Safety Report 18295770 (Version 1)
Quarter: 2020Q3

REPORT INFORMATION
  Report Type: Spontaneous
  Country: US (occurrence: US)
  Receive Date: 20200922
  Receipt Date: 20200922
  Transmission Date: 20201103
  Serious: No
  Sender: FDA-Public Use
  Company Number: US-AMARIN PHARMA, INC.-2020AMR000219

PATIENT
  Age: 83 Year
  Sex: Female

DRUGS (2)
  1. VASCEPA [Suspect]
     Active Substance: ICOSAPENT ETHYL
     Indication: CORONARY ARTERIAL STENT INSERTION
     Route: 048
     Dates: start: 20200318, end: 20200319
  2. VASCEPA [Suspect]
     Active Substance: ICOSAPENT ETHYL
     Indication: ATRIAL FIBRILLATION

REACTIONS (2)
  - Cough [Not Recovered/Not Resolved]
  - Underdose [Unknown]

NARRATIVE: CASE EVENT DATE: 20200318
